FAERS Safety Report 8456108-7 (Version None)
Quarter: 2012Q2

REPORT INFORMATION
  Report Type: 
  Country: None (occurrence: None)
  Receive Date: 20120621
  Receipt Date: 20120616
  Transmission Date: 20120825
  Serious: Yes (Other)
  Sender: FDA-Public Use
  Company Number: PHHY2012MX052565

PATIENT
  Sex: Female

DRUGS (2)
  1. EXFORGE [Suspect]
     Indication: HYPERTENSION
     Dosage: 2 DF (160 MG VALS AND 5 MG AMLO), PER DAY
     Dates: start: 20110313
  2. ASPIRIN [Concomitant]
     Indication: HYPERTENSION
     Dosage: 1 DF, PER DAY
     Dates: start: 20110312

REACTIONS (2)
  - LIMB INJURY [None]
  - FALL [None]
